FAERS Safety Report 8373582-5 (Version None)
Quarter: 2012Q2

REPORT INFORMATION
  Report Type: 
  Country: None (occurrence: None)
  Receive Date: 20120521
  Receipt Date: 20110831
  Transmission Date: 20120825
  Serious: No
  Sender: FDA-Public Use
  Company Number: US-TEVA-2011004580

PATIENT
  Age: 86 Year
  Sex: Female

DRUGS (3)
  1. RITUXAN [Concomitant]
  2. TREANDA [Suspect]
     Route: 042
  3. TREANDA [Suspect]
     Indication: CHRONIC LYMPHOCYTIC LEUKAEMIA
     Route: 042

REACTIONS (1)
  - RASH [None]
